FAERS Safety Report 4555751-5 (Version None)
Quarter: 2005Q1

REPORT INFORMATION
  Report Type: 
  Country: None (occurrence: None)
  Receive Date: 20050119
  Receipt Date: 20050112
  Transmission Date: 20050727
  Serious: Yes (Life-Threatening, Hospitalization, Disabling)
  Sender: FDA-Public Use
  Company Number: 200510360GDDC

PATIENT
  Age: 67 Year
  Sex: Female
  Weight: 82 kg

DRUGS (4)
  1. ENOXAPARIN SODIUM [Suspect]
     Indication: ACUTE CORONARY SYNDROME
     Route: 058
     Dates: start: 20041218, end: 20041220
  2. SIMVASTATIN [Concomitant]
     Route: 048
  3. BENDROFLUAZIDE [Concomitant]
     Route: 048
  4. ASPIRIN [Concomitant]
     Route: 048
     Dates: start: 20041018

REACTIONS (3)
  - HAEMORRHAGIC STROKE [None]
  - HYPERTENSION [None]
  - NERVOUS SYSTEM DISORDER [None]
